FAERS Safety Report 4818181-4 (Version None)
Quarter: 2005Q3

REPORT INFORMATION
  Report Type: 
  Country: None (occurrence: None)
  Receive Date: 20050929
  Receipt Date: 20050608
  Transmission Date: 20060218
  Serious: No
  Sender: FDA-Public Use
  Company Number: 05P-163-0302585-00

PATIENT
  Age: 58 Year
  Sex: Female
  Weight: 89.3586 kg

DRUGS (11)
  1. HUMIRA [Suspect]
     Indication: RHEUMATOID ARTHRITIS
     Dosage: 40 MG, 1 IN 2 WK, SUBCUTANEOUS
     Route: 058
     Dates: start: 20050301, end: 20050518
  2. LEVOTHYROXINE SODIUM [Concomitant]
  3. PROVELLA-14 [Concomitant]
  4. SERETIDE MITE [Concomitant]
  5. FOLIC ACID [Concomitant]
  6. TOCOPHEROL CONCENTRATE CAP [Concomitant]
  7. NAPROXEN [Concomitant]
  8. BUDESONIDE [Concomitant]
  9. GLUCOSAMINE [Concomitant]
  10. CHONDROITIN [Concomitant]
  11. MSM [Concomitant]

REACTIONS (1)
  - SINUSITIS [None]
